FAERS Safety Report 6075710-3 (Version None)
Quarter: 2009Q1

REPORT INFORMATION
  Report Type: 
  Country: None (occurrence: None)
  Receive Date: 20090212
  Receipt Date: 20090129
  Transmission Date: 20090719
  Serious: Yes (Hospitalization)
  Sender: FDA-Public Use
  Company Number: US-MERCK-0902USA00793

PATIENT
  Sex: Female

DRUGS (1)
  1. HYDRODIURIL [Suspect]
     Route: 048
     Dates: end: 20040101

REACTIONS (2)
  - DEHYDRATION [None]
  - HYPONATRAEMIA [None]
